FAERS Safety Report 8072546-9 (Version None)
Quarter: 2012Q1

REPORT INFORMATION
  Report Type: 
  Country: None (occurrence: None)
  Receive Date: 20120126
  Receipt Date: 20120120
  Transmission Date: 20120608
  Serious: Yes (Hospitalization, Other)
  Sender: FDA-Public Use
  Company Number: US-PFIZER INC-2012017134

PATIENT
  Sex: Male

DRUGS (2)
  1. GLUCOTROL [Suspect]
     Dosage: UNK
  2. GLUCOPHAGE [Suspect]
     Dosage: UNK

REACTIONS (1)
  - CORONARY ARTERY BYPASS [None]
